FAERS Safety Report 18260046 (Version 1)
Quarter: 2020Q3

REPORT INFORMATION
  Report Type: Spontaneous
  Country: CA (occurrence: CA)
  Receive Date: 20200913
  Receipt Date: 20200913
  Transmission Date: 20201103
  Serious: Yes (Death, Hospitalization, Other)
  Sender: FDA-Public Use
  Company Number: CA-HLS-202001414

PATIENT
  Age: 67 Year
  Sex: Female
  Weight: 32 kg

DRUGS (1)
  1. CLOZAPINE. [Suspect]
     Active Substance: CLOZAPINE
     Indication: SCHIZOAFFECTIVE DISORDER
     Route: 065

REACTIONS (4)
  - Pneumonia [Unknown]
  - Ankle fracture [Unknown]
  - Pulmonary thrombosis [Unknown]
  - Death [Fatal]
